FAERS Safety Report 7376116-7 (Version None)
Quarter: 2011Q1

REPORT INFORMATION
  Report Type: 
  Country: None (occurrence: None)
  Receive Date: 20110325
  Receipt Date: 20110314
  Transmission Date: 20110831
  Serious: Yes (Other)
  Sender: FDA-Public Use
  Company Number: PHHY2011BR22098

PATIENT
  Sex: Male

DRUGS (2)
  1. ALLOPURINOL [Suspect]
     Dosage: 300 MG, QD
     Route: 048
  2. METFORMIN HYDROCHLORIDE [Concomitant]
     Indication: DIABETES MELLITUS
     Dosage: 850 MG, QD
     Route: 048

REACTIONS (1)
  - MOVEMENT DISORDER [None]
